FAERS Safety Report 4843475-6 (Version None)
Quarter: 2005Q4

REPORT INFORMATION
  Report Type: 
  Country: None (occurrence: None)
  Receive Date: 20051101
  Receipt Date: 20050606
  Transmission Date: 20060501
  Serious: Yes (Life-Threatening)
  Sender: FDA-Public Use
  Company Number: DSA_26585_2005

PATIENT
  Age: 36 Year
  Sex: Female
  Weight: 85.9 kg

DRUGS (6)
  1. ATIVAN [Suspect]
     Dosage: DF ONCE PO
     Route: 048
     Dates: start: 20050509, end: 20050509
  2. ATIVAN [Suspect]
     Indication: INSOMNIA
     Dosage: 2 MG PRN PO
     Route: 048
     Dates: start: 20050412
  3. RISPERIDONE [Suspect]
     Indication: SCHIZOPHRENIA
     Dosage: 6 MG Q DAY PO
     Route: 048
     Dates: start: 20050417, end: 20050510
  4. RISPERIDONE [Suspect]
     Indication: SCHIZOPHRENIA
     Dosage: 4 MG Q DAY PO
     Route: 048
     Dates: start: 20050416, end: 20050416
  5. RISPERIDONE [Suspect]
     Indication: SCHIZOPHRENIA
     Dosage: 2 MG Q DAY PO
     Route: 048
     Dates: start: 20050415, end: 20050415
  6. COGENTIN [Concomitant]

REACTIONS (1)
  - INTENTIONAL DRUG MISUSE [None]
